FAERS Safety Report 8429096-7 (Version None)
Quarter: 2012Q2

REPORT INFORMATION
  Report Type: 
  Country: None (occurrence: None)
  Receive Date: 20120612
  Receipt Date: 20120601
  Transmission Date: 20120825
  Serious: Yes (Other)
  Sender: FDA-Public Use
  Company Number: US-JNJFOC-20120412927

PATIENT
  Sex: Male
  Weight: 102.06 kg

DRUGS (2)
  1. DURAGESIC-100 [Suspect]
     Indication: PAIN
     Route: 062
     Dates: start: 20120401
  2. DURAGESIC-100 [Suspect]
     Route: 062

REACTIONS (2)
  - SURGERY [None]
  - WRONG TECHNIQUE IN DRUG USAGE PROCESS [None]
